FAERS Safety Report 18455823 (Version 1)
Quarter: 2020Q4

REPORT INFORMATION
  Report Type: Spontaneous
  Country: US (occurrence: US)
  Receive Date: 20201103
  Receipt Date: 20201103
  Transmission Date: 20210114
  Serious: No
  Sender: FDA-Public Use
  Company Number: US-AMGEN-USASP2020171626

PATIENT
  Age: 83 Year
  Sex: Female

DRUGS (7)
  1. ELIQUIS [Concomitant]
     Active Substance: APIXABAN
     Dosage: 5 MILLIGRAM, BID
  2. LISINOPRIL. [Concomitant]
     Active Substance: LISINOPRIL
     Dosage: 10 MILLIGRAM
  3. METOPROLOL. [Concomitant]
     Active Substance: METOPROLOL
     Indication: BLOOD CHOLESTEROL DECREASED
     Dosage: 225 MILLIGRAM, Q8H
  4. REPATHA [Suspect]
     Active Substance: EVOLOCUMAB
     Indication: CARDIOVASCULAR DISORDER
     Dosage: 140 MILLIGRAM, Q2WK
     Route: 065
     Dates: start: 201904
  5. METOPROLOL. [Concomitant]
     Active Substance: METOPROLOL
     Dosage: 400 MILLIGRAM
     Dates: start: 201811
  6. REPATHA [Suspect]
     Active Substance: EVOLOCUMAB
     Indication: PROPHYLAXIS
  7. ELIQUIS [Concomitant]
     Active Substance: APIXABAN
     Dosage: 2.5 MILLIGRAM, BID

REACTIONS (11)
  - Sinusitis [Unknown]
  - Pruritus [Unknown]
  - Blood cholesterol decreased [Unknown]
  - Herpes zoster [Unknown]
  - Localised infection [Unknown]
  - Blood iron decreased [Unknown]
  - Selective eating disorder [Unknown]
  - Vitreous floaters [Unknown]
  - Dizziness [Unknown]
  - Rhinorrhoea [Unknown]
  - Back pain [Unknown]

NARRATIVE: CASE EVENT DATE: 2019
